FAERS Safety Report 5903973-0 (Version None)
Quarter: 2008Q3

REPORT INFORMATION
  Report Type: 
  Country: None (occurrence: None)
  Receive Date: 20080930
  Receipt Date: 20080922
  Transmission Date: 20090109
  Serious: Yes (Life-Threatening)
  Sender: FDA-Public Use
  Company Number: GB-ABBOTT-08P-167-0477482-00

PATIENT
  Age: 79 Year
  Sex: Female

DRUGS (8)
  1. TEVETEN [Suspect]
     Indication: DRUG USE FOR UNKNOWN INDICATION
     Dosage: 1 DOSAGE FORM DAILY
     Route: 048
     Dates: start: 20080821, end: 20080826
  2. LACTULOSE [Concomitant]
     Indication: DRUG USE FOR UNKNOWN INDICATION
  3. BENZYDAMINE HYDROCHLORIDE [Concomitant]
     Indication: DRUG USE FOR UNKNOWN INDICATION
  4. SOLPADEINE PLUS [Concomitant]
     Indication: DRUG USE FOR UNKNOWN INDICATION
  5. BISOPROLOL FUMARATE [Concomitant]
     Indication: DRUG USE FOR UNKNOWN INDICATION
     Dosage: 2.5 MG DAILY
  6. FERROUS SULFATE [Concomitant]
     Indication: DRUG USE FOR UNKNOWN INDICATION
  7. NAPROXEN SODIUM [Concomitant]
     Indication: DRUG USE FOR UNKNOWN INDICATION
     Dosage: 250 MG DAILY
  8. FUROSEMIDE [Concomitant]
     Indication: DRUG USE FOR UNKNOWN INDICATION
     Dosage: 20 MG DAILY

REACTIONS (4)
  - DIARRHOEA [None]
  - EYE SWELLING [None]
  - LIP OEDEMA [None]
  - ORAL PAIN [None]
